FAERS Safety Report 24011344 (Version 2)
Quarter: 2024Q3

REPORT INFORMATION
  Report Type: Report from Study
  Country: DE (occurrence: DE)
  Receive Date: 20240625
  Receipt Date: 20240812
  Transmission Date: 20241017
  Serious: Yes (Other)
  Sender: JOHNSON AND JOHNSON
  Company Number: DE-REMICADEPIB4003-4901-2639

PATIENT
  Age: 16 Year
  Sex: Female

DRUGS (3)
  1. REMICADE [Suspect]
     Active Substance: INFLIXIMAB
     Indication: Crohn^s disease
     Route: 041
     Dates: start: 20100226, end: 20100525
  2. REMICADE [Suspect]
     Active Substance: INFLIXIMAB
     Route: 041
     Dates: start: 20100803, end: 20111223
  3. REMICADE [Suspect]
     Active Substance: INFLIXIMAB
     Route: 041
     Dates: start: 20120224, end: 20120224

REACTIONS (7)
  - Anal abscess [Recovered/Resolved]
  - Jejunal stenosis [Unknown]
  - Ileocaecal resection [Unknown]
  - Bacterial disease carrier [Recovered/Resolved]
  - Viral pharyngitis [Unknown]
  - Eczema [Recovered/Resolved]
  - Tonsillitis [Recovered/Resolved]

NARRATIVE: CASE EVENT DATE: 20120401
